FAERS Safety Report 18329612 (Version 2)
Quarter: 2023Q1

REPORT INFORMATION
  Report Type: Spontaneous
  Country: DE (occurrence: DE)
  Receive Date: 20200930
  Receipt Date: 20230131
  Transmission Date: 20230418
  Serious: Yes (Hospitalization)
  Sender: FDA-Public Use
  Company Number: None

PATIENT
  Age: 62 Year
  Sex: Male

DRUGS (19)
  1. ATORVASTATIN [Suspect]
     Active Substance: ATORVASTATIN
     Dosage: 40 MG, 0-0-1-0, TABLETS
  2. EZETIMIBE [Suspect]
     Active Substance: EZETIMIBE
     Dosage: 10 MG, 1-0-0-0, TABLETS
  3. TORSEMIDE [Suspect]
     Active Substance: TORSEMIDE
     Dosage: 20 MG, 2-2-0-0, TABLETS
  4. SPIRONOLACTONE [Suspect]
     Active Substance: SPIRONOLACTONE
     Dosage: 50 MG, 0.5-0-0-0, TABLETS
  5. IBUPROFEN [Suspect]
     Active Substance: IBUPROFEN
     Dosage: 600 MG, 1-0-0-0
  6. INDAPAMIDE\PERINDOPRIL [Suspect]
     Active Substance: INDAPAMIDE\PERINDOPRIL
     Dosage: 1.25/5 MG, 1-0-0-0, TABLETS
  7. LERCANIDIPINE [Suspect]
     Active Substance: LERCANIDIPINE
     Dosage: 20 MG, 0.5-0-0.5-0, TABLETS
  8. ASPIRIN [Concomitant]
     Active Substance: ASPIRIN
     Dosage: 100 MG, 0-1-0-0, METERED DOSE INHALER
  9. ALBUTEROL [Concomitant]
     Active Substance: ALBUTEROL
     Dosage: 0.1 MG, REQUIREMENT, METERED DOSE INHALER
  10. NITROGLYCERIN [Concomitant]
     Active Substance: NITROGLYCERIN
     Dosage: 0.4 MG, DEMAND, TABLETS
  11. ACTRAPID [Concomitant]
     Active Substance: INSULIN HUMAN
     Dosage: ACCORDING TO PLAN, SOLUTION FOR INJECTION / INFUSION
     Route: 058
  12. PREGABALIN [Concomitant]
     Active Substance: PREGABALIN
     Dosage: 75 MG, 1-0-1-0, CAPSULES
  13. INSULIN GLARGINE [Concomitant]
     Active Substance: INSULIN GLARGINE
     Dosage: ACCORDING TO PLAN, SOLUTION FOR INJECTION / INFUSION
     Route: 058
  14. CHOLECALCIFEROL [Concomitant]
     Active Substance: CHOLECALCIFEROL
     Dosage: 24/5000 1000 IU, 0-1-0-0, CAPSULES
  15. VERAPAMIL [Concomitant]
     Active Substance: VERAPAMIL HYDROCHLORIDE
     Dosage: 120 MG, 1-0-1-0, TABLETS
  16. TAMSULOSIN [Concomitant]
     Active Substance: TAMSULOSIN
     Dosage: 0.4 MG, 1-0-0-0, RETARD CAPSULES
  17. BUPROPION [Concomitant]
     Active Substance: BUPROPION
     Dosage: 150 MG, AS NEEDED, TABLETS
  18. OMEPRAZOLE [Concomitant]
     Active Substance: OMEPRAZOLE
     Dosage: 40 MG, 0-0-1-0, CAPSULES
  19. FORMOTEROL [Concomitant]
     Active Substance: FORMOTEROL
     Dosage: 12 UG, 1-0-0-0, CAPSULES FOR INHALATION

REACTIONS (9)
  - Condition aggravated [Recovering/Resolving]
  - Dry skin [Recovering/Resolving]
  - Renal impairment [Unknown]
  - Acute kidney injury [Recovering/Resolving]
  - Dyspnoea exertional [Recovering/Resolving]
  - Oedema peripheral [Recovering/Resolving]
  - Rash [Recovering/Resolving]
  - Product prescribing error [Unknown]
  - Product prescribing error [Unknown]
